FAERS Safety Report 10494952 (Version 6)
Quarter: 2015Q3

REPORT INFORMATION
  Report Type: Report from Study
  Country: US (occurrence: US)
  Receive Date: 20141003
  Receipt Date: 20150710
  Transmission Date: 20151125
  Serious: Yes (Other)
  Sender: FDA-Public Use
  Company Number: US-SANOFI-AVENTIS-2013SA029850

PATIENT
  Age: 31 Year
  Sex: Female

DRUGS (4)
  1. AUBAGIO [Suspect]
     Active Substance: TERIFLUNOMIDE
     Indication: MULTIPLE SCLEROSIS
     Route: 048
     Dates: end: 20150602
  2. AUBAGIO [Suspect]
     Active Substance: TERIFLUNOMIDE
     Indication: MULTIPLE SCLEROSIS
     Route: 048
     Dates: start: 20121126
  3. GABAPENTIN. [Concomitant]
     Active Substance: GABAPENTIN
  4. GILENYA [Concomitant]
     Active Substance: FINGOLIMOD HYDROCHLORIDE
     Indication: MULTIPLE SCLEROSIS
     Dates: start: 2013

REACTIONS (29)
  - Blood potassium decreased [Unknown]
  - Blood calcium decreased [Unknown]
  - Hypoaesthesia [Unknown]
  - Dizziness [Unknown]
  - Multiple sclerosis relapse [Not Recovered/Not Resolved]
  - Hypoaesthesia [Recovered/Resolved]
  - Pain in extremity [Unknown]
  - Radiculopathy [Unknown]
  - Peripheral swelling [Unknown]
  - Feeling hot [Unknown]
  - Hypoaesthesia [Unknown]
  - Hyperaesthesia [Unknown]
  - Alopecia [Recovered/Resolved]
  - Pruritus [Unknown]
  - Erythema [Unknown]
  - Mobility decreased [Not Recovered/Not Resolved]
  - Dyskinesia [Not Recovered/Not Resolved]
  - Dysphemia [Unknown]
  - Motor dysfunction [Unknown]
  - Paraesthesia [Unknown]
  - Pain in extremity [Not Recovered/Not Resolved]
  - Confusional state [Unknown]
  - Nerve compression [Unknown]
  - Vertigo [Unknown]
  - Dizziness [Recovered/Resolved]
  - Joint lock [Unknown]
  - Unevaluable event [Unknown]
  - Neuropathy peripheral [Unknown]
  - Drug dose omission [Unknown]

NARRATIVE: CASE EVENT DATE: 201404
